FAERS Safety Report 7539900-2 (Version None)
Quarter: 2011Q2

REPORT INFORMATION
  Report Type: 
  Country: None (occurrence: None)
  Receive Date: 20110603
  Receipt Date: 20110422
  Transmission Date: 20111010
  Serious: No
  Sender: FDA-Public Use
  Company Number: 2011SP014355

PATIENT
  Age: 82 Year
  Sex: Female
  Weight: 65.7716 kg

DRUGS (9)
  1. MIRALAX [Suspect]
     Indication: CONSTIPATION
     Dosage: 17 GM;QD;PO
     Route: 048
  2. DIOVAN [Concomitant]
  3. NORVASC [Concomitant]
  4. HYDROCODONE [Concomitant]
  5. ZOLOFT [Concomitant]
  6. ASPIRIN [Concomitant]
  7. MORPHINE [Concomitant]
  8. APAP TAB [Concomitant]
  9. LIPITOR [Concomitant]

REACTIONS (13)
  - FUNGAL SKIN INFECTION [None]
  - FLUSHING [None]
  - ANORECTAL DISCOMFORT [None]
  - SEPSIS [None]
  - DYSURIA [None]
  - DRUG EFFECT DECREASED [None]
  - DIARRHOEA [None]
  - PROCTALGIA [None]
  - VULVOVAGINAL PAIN [None]
  - OEDEMA PERIPHERAL [None]
  - ABDOMINAL DISCOMFORT [None]
  - NIGHT SWEATS [None]
  - VULVOVAGINAL MYCOTIC INFECTION [None]
